FAERS Safety Report 19224299 (Version 4)
Quarter: 2021Q3

REPORT INFORMATION
  Report Type: Report from Study
  Country: KR (occurrence: KR)
  Receive Date: 20210506
  Receipt Date: 20210909
  Transmission Date: 20211014
  Serious: Yes (Life-Threatening)
  Sender: FDA-Public Use
  Company Number: KR-GLAXOSMITHKLINE-KR2021GSK095634

PATIENT
  Age: 60 Year
  Sex: Male

DRUGS (13)
  1. IRBESARTAN. [Concomitant]
     Active Substance: IRBESARTAN
     Indication: HYPERTENSION
     Dosage: 150 MG, QD
     Route: 048
     Dates: start: 201904
  2. HYALURONATE SODIUM [Concomitant]
     Active Substance: HYALURONATE SODIUM
     Indication: KERATOPATHY
     Dosage: 0.5 ML, Q4H
     Route: 047
     Dates: start: 20210118
  3. FLUOROMETHOLONE. [Concomitant]
     Active Substance: FLUOROMETHOLONE
     Dosage: 5 ML, QID
     Route: 047
     Dates: start: 20210412, end: 20210426
  4. APROVEL TABLET [Concomitant]
     Indication: HYPERTENSION
     Dosage: 150 MG, QD
     Route: 048
     Dates: start: 201904
  5. CARBOXYMETHYLCELLULOSE [Concomitant]
     Active Substance: CARBOXYMETHYLCELLULOSE
     Indication: KERATOPATHY
     Dosage: 4 ML, QID
     Route: 047
     Dates: start: 20201008, end: 20201026
  6. ASPIRIN. [Concomitant]
     Active Substance: ASPIRIN
     Indication: HYPERTENSION
     Dosage: 100 MG, QD
     Route: 048
     Dates: start: 20201008
  7. DIQUAFOSOL TETRASODIUM [Concomitant]
     Active Substance: DIQUAFOSOL TETRASODIUM
     Indication: KERATOPATHY
     Dosage: 5 ML, QID
     Route: 047
     Dates: start: 20210118, end: 20210208
  8. CARBOMERS [Concomitant]
     Indication: KERATOPATHY
     Dosage: 10 G, QD
     Route: 047
     Dates: start: 20210118
  9. FLUOROMETHOLONE. [Concomitant]
     Active Substance: FLUOROMETHOLONE
     Dosage: 5 ML, QID
     Route: 047
     Dates: start: 20210617
  10. ASTRIX CAPSULE [Concomitant]
     Indication: HYPERTENSION
     Dosage: 100 MG, QD
     Route: 048
     Dates: start: 20201007
  11. FLUOROMETHOLONE. [Concomitant]
     Active Substance: FLUOROMETHOLONE
     Indication: KERATOPATHY
     Dosage: 5 ML, QID
     Route: 047
     Dates: start: 20210322, end: 20210329
  12. CARBOXYMETHYLCELLULOSE [Concomitant]
     Active Substance: CARBOXYMETHYLCELLULOSE
     Dosage: 4 ML, QID
     Route: 047
     Dates: start: 20201026, end: 20210118
  13. BELANTAMAB MAFODOTIN. [Suspect]
     Active Substance: BELANTAMAB MAFODOTIN
     Indication: PLASMA CELL MYELOMA
     Dosage: 2.5 MG/KG, CYC ON DAY 1 OF EVERY 21 DAY CYCLE
     Route: 042
     Dates: end: 20201210

REACTIONS (1)
  - Neutrophil count decreased [Recovered/Resolved]

NARRATIVE: CASE EVENT DATE: 20201210
